FAERS Safety Report 11768059 (Version 1)
Quarter: 2015Q4

REPORT INFORMATION
  Report Type: Spontaneous
  Country: US (occurrence: US)
  Receive Date: 20151123
  Receipt Date: 20151123
  Transmission Date: 20160304
  Serious: No
  Sender: FDA-Public Use
  Company Number: US-JNJFOC-20151014857

PATIENT
  Age: 73 Year
  Sex: Female
  Weight: 76.2 kg

DRUGS (3)
  1. ZYRTEC [Suspect]
     Active Substance: CETIRIZINE HYDROCHLORIDE
     Route: 048
  2. ZYRTEC [Suspect]
     Active Substance: CETIRIZINE HYDROCHLORIDE
     Indication: URTICARIA
     Dosage: 1 TABLET, ONCE
     Route: 048
     Dates: start: 20151018, end: 20151018
  3. OTHER CARDIAC PREPARATIONS [Concomitant]
     Active Substance: UNSPECIFIED INGREDIENT
     Indication: CARDIAC DISORDER
     Dosage: DAILY
     Route: 065

REACTIONS (4)
  - Insomnia [Recovered/Resolved]
  - Product use issue [Unknown]
  - Wrong patient received medication [Unknown]
  - Therapeutic response unexpected [Unknown]

NARRATIVE: CASE EVENT DATE: 20151018
